FAERS Safety Report 22108981 (Version 1)
Quarter: 2023Q1

REPORT INFORMATION
  Report Type: Report from Study
  Country: KR (occurrence: KR)
  Receive Date: 20230317
  Receipt Date: 20230317
  Transmission Date: 20230418
  Serious: Yes (Hospitalization)
  Sender: FDA-Public Use
  Company Number: KR-SA-SAC20230315000275

PATIENT
  Age: 68 Year
  Sex: Female
  Weight: 53.7 kg

DRUGS (3)
  1. ISATUXIMAB [Suspect]
     Active Substance: ISATUXIMAB
     Indication: T-cell lymphoma refractory
     Dosage: 530 MG, QOW
     Route: 042
     Dates: start: 20230125, end: 20230125
  2. CEMIPLIMAB [Suspect]
     Active Substance: CEMIPLIMAB
     Indication: T-cell lymphoma refractory
     Dosage: 250 MG, QOW
     Route: 042
     Dates: start: 20230309, end: 20230309
  3. CEMIPLIMAB [Suspect]
     Active Substance: CEMIPLIMAB
     Dosage: 250 MG, QOW
     Route: 042
     Dates: start: 20230125, end: 20230125

REACTIONS (1)
  - Pneumonia [Not Recovered/Not Resolved]

NARRATIVE: CASE EVENT DATE: 20230312
